FAERS Safety Report 24073157 (Version 1)
Quarter: 2024Q3

REPORT INFORMATION
  Report Type: Spontaneous
  Country: CN (occurrence: CN)
  Receive Date: 20240710
  Receipt Date: 20240710
  Transmission Date: 20241017
  Serious: Yes (Hospitalization, Other)
  Sender: PFIZER
  Company Number: CN-PFIZER INC-PV202400089411

PATIENT
  Age: 45 Year
  Sex: Female
  Weight: 62 kg

DRUGS (3)
  1. EPIRUBICIN [Suspect]
     Active Substance: EPIRUBICIN
     Indication: Breast cancer female
     Dosage: 110.000 MG, ALTERNATE DAY
     Route: 041
     Dates: start: 20240607, end: 20240608
  2. PACLITAXEL [Suspect]
     Active Substance: PACLITAXEL
     Indication: Breast cancer female
     Dosage: 240.000 MG, ALTERNATE DAY
     Route: 041
     Dates: start: 20240607, end: 20240608
  3. CYCLOPHOSPHAMIDE [Suspect]
     Active Substance: CYCLOPHOSPHAMIDE
     Indication: Breast cancer female
     Dosage: 0.800 G, ALTERNATE DAY
     Route: 041
     Dates: start: 20240607, end: 20240608

REACTIONS (1)
  - Hepatocellular injury [Recovering/Resolving]

NARRATIVE: CASE EVENT DATE: 20240701
